FAERS Safety Report 5811139-8 (Version None)
Quarter: 2008Q3

REPORT INFORMATION
  Report Type: 
  Country: None (occurrence: None)
  Receive Date: 20080716
  Receipt Date: 20080711
  Transmission Date: 20090109
  Serious: Yes (Congenital Anomaly)
  Sender: FDA-Public Use
  Company Number: GB-TEVA-174229ISR

PATIENT

DRUGS (1)
  1. FLUOXETINE [Suspect]
     Route: 064

REACTIONS (8)
  - AGITATION NEONATAL [None]
  - DRUG EXPOSURE DURING PREGNANCY [None]
  - DYSKINESIA NEONATAL [None]
  - HEAD CIRCUMFERENCE ABNORMAL [None]
  - SMALL FOR DATES BABY [None]
  - SNEEZING [None]
  - SPINE MALFORMATION [None]
  - TALIPES [None]
